FAERS Safety Report 17735453 (Version 2)
Quarter: 2020Q2

REPORT INFORMATION
  Report Type: Spontaneous
  Country: GB (occurrence: GB)
  Receive Date: 20200501
  Receipt Date: 20200515
  Transmission Date: 20200714
  Serious: Yes (Death)
  Sender: FDA-Public Use
  Company Number: GB-MYLANLABS-2020M1043567

PATIENT
  Age: 74 Year
  Sex: Female

DRUGS (9)
  1. CITALOPRAM [Concomitant]
     Active Substance: CITALOPRAM HYDROBROMIDE
     Indication: DEPRESSION
     Dosage: 20 MILLIGRAM, QD
  2. PREGABALIN. [Concomitant]
     Active Substance: PREGABALIN
     Indication: PAIN
     Dosage: 50 MILLIGRAM, BID
  3. CLOZARIL [Suspect]
     Active Substance: CLOZAPINE
     Indication: SCHIZOPHRENIA
     Dosage: 81.25 MILLIGRAM, QD
     Route: 048
     Dates: start: 20170308
  4. PROCYCLIDINE [Concomitant]
     Active Substance: PROCYCLIDINE
     Indication: MUSCLE RELAXANT THERAPY
     Dosage: 5 MILLIGRAM, QD
  5. CO-CARELDOPA [Concomitant]
     Active Substance: CARBIDOPA\LEVODOPA
     Indication: PARKINSON^S DISEASE
     Dosage: UNK, MR QD
  6. CO-CARELDOPA [Concomitant]
     Active Substance: CARBIDOPA\LEVODOPA
     Dosage: UNK, 6XD
  7. LAXIDO [Concomitant]
     Active Substance: POLYETHYLENE GLYCOL 3350\POTASSIUM CHLORIDE\SODIUM BICARBONATE\SODIUM CHLORIDE
     Indication: CONSTIPATION
     Dosage: 1 SACHET DAILY
  8. CLOPIDOGREL [Concomitant]
     Active Substance: CLOPIDOGREL BISULFATE
     Indication: CEREBROVASCULAR ACCIDENT PROPHYLAXIS
     Dosage: 75 MILLIGRAM, QD
  9. SIMVASTATIN. [Concomitant]
     Active Substance: SIMVASTATIN
     Indication: BLOOD CHOLESTEROL ABNORMAL
     Dosage: 20 MILLIGRAM, QD

REACTIONS (1)
  - Pneumonia [Fatal]

NARRATIVE: CASE EVENT DATE: 20200201
